FAERS Safety Report 10613902 (Version 2)
Quarter: 2015Q2

REPORT INFORMATION
  Report Type: Spontaneous
  Country: IT (occurrence: IT)
  Receive Date: 20141128
  Receipt Date: 20150410
  Transmission Date: 20150821
  Serious: Yes (Hospitalization, Other)
  Sender: FDA-Public Use
  Company Number: IT-SA-2014SA159134

PATIENT
  Age: 64 Year
  Sex: Male

DRUGS (1)
  1. APIDRA [Suspect]
     Active Substance: INSULIN GLULISINE
     Route: 058
     Dates: start: 20141117, end: 20141117

REACTIONS (5)
  - Hyperhidrosis [Recovering/Resolving]
  - Toxicity to various agents [Recovering/Resolving]
  - Drug abuse [Unknown]
  - Haematuria [Recovering/Resolving]
  - Blood glucose decreased [Unknown]

NARRATIVE: CASE EVENT DATE: 20141117
